FAERS Safety Report 4329861-1 (Version None)
Quarter: 2004Q1

REPORT INFORMATION
  Report Type: 
  Country: None (occurrence: None)
  Receive Date: 20040329
  Receipt Date: 20040311
  Transmission Date: 20041129
  Serious: Yes (Hospitalization)
  Sender: FDA-Public Use
  Company Number: 200403541

PATIENT
  Age: 15 Year
  Sex: Female

DRUGS (1)
  1. PEPCID [Suspect]
     Dosage: 1 TABLET ONCE, PO
     Route: 048

REACTIONS (2)
  - ACCIDENTAL EXPOSURE [None]
  - PARKINSONISM [None]
